FAERS Safety Report 6506187-9 (Version None)
Quarter: 2009Q4

REPORT INFORMATION
  Report Type: 
  Country: None (occurrence: None)
  Receive Date: 20091218
  Receipt Date: 20091217
  Transmission Date: 20100525
  Serious: Yes (Other)
  Sender: FDA-Public Use
  Company Number: US-PFIZER INC-2009292085

PATIENT
  Sex: Female
  Weight: 82 kg

DRUGS (1)
  1. DEPO-PROVERA [Suspect]
     Indication: CONTRACEPTION
     Dosage: 150 MG, UNK
     Dates: end: 20061101

REACTIONS (3)
  - INTERVERTEBRAL DISC PROTRUSION [None]
  - MUSCLE INJURY [None]
  - OSTEOPOROSIS [None]
